FAERS Safety Report 17839369 (Version 1)
Quarter: 2020Q2

REPORT INFORMATION
  Report Type: Report from Study
  Country: IN (occurrence: IN)
  Receive Date: 20200529
  Receipt Date: 20200529
  Transmission Date: 20200714
  Serious: Yes (Death)
  Sender: FDA-Public Use
  Company Number: NVSC2020IN148181

PATIENT
  Age: 71 Year
  Sex: Male

DRUGS (1)
  1. REVOLADE [Suspect]
     Active Substance: ELTROMBOPAG
     Indication: APLASTIC ANAEMIA
     Dosage: 150 MG, BID
     Route: 065
     Dates: start: 20200301

REACTIONS (1)
  - Death [Fatal]

NARRATIVE: CASE EVENT DATE: 20200501
